FAERS Safety Report 8212933-9 (Version None)
Quarter: 2012Q1

REPORT INFORMATION
  Report Type: 
  Country: None (occurrence: None)
  Receive Date: 20120229
  Receipt Date: 20111205
  Transmission Date: 20120608
  Serious: Yes (Hospitalization)
  Sender: FDA-Public Use
  Company Number: US-JNJFOC-20110610698

PATIENT
  Age: 61 Year
  Sex: Female

DRUGS (12)
  1. UNSPECIFIED STUDY DRUG (INVESTIGATIONAL DRUG) UNSPECIFIED [Suspect]
     Indication: MYELOFIBROSIS
     Dosage: 30 MG, 1 IN 1 DAY, UNKNOWN
     Dates: start: 20100111, end: 20110109
  2. MORPHINE [Concomitant]
  3. IBUPROFEN [Suspect]
     Indication: ABDOMINAL PAIN
     Dosage: 400 MG, ORAL
     Route: 048
     Dates: start: 20110108, end: 20110108
  4. IRBESARTAN (IRBESARTAN) UNSPECIFIED [Concomitant]
  5. MACROGOL (MACROGOL) [Concomitant]
  6. HYDROCHLOROTHIAZIDE (HYDROCHLOROTHIAZIDE) UNSPECIFIED [Concomitant]
  7. ALBUTEROL [Concomitant]
  8. FLUTICASONE PROPIONATE [Concomitant]
  9. ALOE VERA (ALOE VERA) [Concomitant]
  10. ACETAMINOPHEN [Concomitant]
  11. LORAZEPAM [Concomitant]
  12. GABAPENTIN [Concomitant]

REACTIONS (1)
  - GASTROINTESTINAL HAEMORRHAGE [None]
